FAERS Safety Report 25853050 (Version 2)
Quarter: 2025Q3

REPORT INFORMATION
  Report Type: Spontaneous
  Country: US (occurrence: US)
  Receive Date: 20250926
  Receipt Date: 20250929
  Transmission Date: 20251021
  Serious: Yes (Other)
  Sender: ABBVIE
  Company Number: US-ABBVIE-6473925

PATIENT
  Sex: Male

DRUGS (1)
  1. DEPAKOTE [Suspect]
     Active Substance: DIVALPROEX SODIUM
     Indication: Seizure
     Route: 048

REACTIONS (15)
  - Seizure [Unknown]
  - Anxiety [Unknown]
  - Withdrawal syndrome [Unknown]
  - Headache [Unknown]
  - Insomnia [Recovering/Resolving]
  - Fear [Unknown]
  - Rash papular [Unknown]
  - Head discomfort [Unknown]
  - Electric shock sensation [Unknown]
  - Off label use [Unknown]
  - Pancreatic enzymes abnormal [Unknown]
  - Abdominal pain [Unknown]
  - Gastritis [Unknown]
  - Sleep disorder [Unknown]
  - Feeling abnormal [Unknown]
